FAERS Safety Report 8031427-7 (Version None)
Quarter: 2011Q4

REPORT INFORMATION
  Report Type: 
  Country: None (occurrence: None)
  Receive Date: 20111201
  Receipt Date: 20101109
  Transmission Date: 20120403
  Serious: Yes (Other)
  Sender: FDA-Public Use
  Company Number: 254952USA

PATIENT
  Sex: Female

DRUGS (1)
  1. PHENTERMINE HYDROCHLORIDE [Suspect]

REACTIONS (1)
  - DRUG DEPENDENCE [None]
